FAERS Safety Report 5524444-X (Version None)
Quarter: 2007Q4

REPORT INFORMATION
  Report Type: 
  Country: None (occurrence: None)
  Receive Date: 20071122
  Receipt Date: 20071120
  Transmission Date: 20080405
  Serious: Yes (Death)
  Sender: FDA-Public Use
  Company Number: US-RB-008588-07

PATIENT
  Age: 27 Year
  Sex: Male
  Weight: 72.9 kg

DRUGS (1)
  1. BUPRENORPHINE HCL [Suspect]
     Indication: DRUG USE FOR UNKNOWN INDICATION
     Dosage: DOSE UNKNOWN
     Route: 060
     Dates: end: 20060101

REACTIONS (2)
  - OVERDOSE [None]
  - PULMONARY CONGESTION [None]
